FAERS Safety Report 10399364 (Version 1)
Quarter: 2014Q1

REPORT INFORMATION
  Report Type: Spontaneous
  Country: US (occurrence: None)
  Receive Date: 20130815
  Receipt Date: 20130815
  Transmission Date: 20141002
  Serious: Yes (Life-Threatening, Hospitalization, Other)
  Sender: FDA-Public Use
  Company Number: ADR-2012-02227

PATIENT
  Age: 23 Year
  Sex: Male

DRUGS (1)
  1. LIORESAL INTRATHECAL (BACLOFEN INJECTION) 2000MCG/ML [Suspect]
     Indication: MUSCLE SPASTICITY
     Dosage: 1100MCG/DAY

REACTIONS (10)
  - Drug withdrawal syndrome [None]
  - Pyrexia [None]
  - Muscle rigidity [None]
  - Muscle spasticity [None]
  - Convulsion [None]
  - Sepsis [None]
  - Therapeutic response decreased [None]
  - Mental status changes [None]
  - Underdose [None]
  - Malaise [None]
